FAERS Safety Report 7660282-X (Version None)
Quarter: 2011Q3

REPORT INFORMATION
  Report Type: 
  Country: None (occurrence: None)
  Receive Date: 20110805
  Receipt Date: 20110725
  Transmission Date: 20111222
  Serious: Yes (Hospitalization)
  Sender: FDA-Public Use
  Company Number: PHHY2010US89419

PATIENT
  Sex: Female

DRUGS (4)
  1. AFINITOR [Suspect]
     Dosage: 10 MG, DAILY
     Route: 048
     Dates: start: 20100902
  2. AFINITOR [Suspect]
     Dosage: 5 MG, UNK
     Route: 048
  3. AFINITOR [Suspect]
     Dosage: 10 MG, DAILY
     Route: 048
     Dates: start: 20101115
  4. AFINITOR [Suspect]
     Dosage: 2.5 MG, UNK
     Route: 048

REACTIONS (8)
  - DRUG INEFFECTIVE [None]
  - FATIGUE [None]
  - NEOPLASM PROGRESSION [None]
  - FRACTURE [None]
  - FALL [None]
  - NEOPLASM MALIGNANT [None]
  - DRUG INTOLERANCE [None]
  - NAUSEA [None]
